FAERS Safety Report 9490831 (Version 2)
Quarter: 2013Q3

REPORT INFORMATION
  Report Type: Spontaneous
  Country: FR (occurrence: FR)
  Receive Date: 20130830
  Receipt Date: 20130906
  Transmission Date: 20140515
  Serious: Yes (Hospitalization)
  Sender: FDA-Public Use
  Company Number: FR-ASTRAZENECA-2013SE65363

PATIENT
  Age: 79 Year
  Sex: Female

DRUGS (6)
  1. INEXIUM [Suspect]
     Route: 048
  2. LASILIX [Suspect]
     Route: 048
  3. ZYLORIC [Suspect]
     Route: 048
  4. PREVISCAN [Concomitant]
  5. CORDARONE [Concomitant]
  6. DIFFU K [Concomitant]

REACTIONS (1)
  - Drug reaction with eosinophilia and systemic symptoms [Not Recovered/Not Resolved]
